FAERS Safety Report 8541550-6 (Version None)
Quarter: 2012Q3

REPORT INFORMATION
  Report Type: 
  Country: None (occurrence: None)
  Receive Date: 20120726
  Receipt Date: 20120504
  Transmission Date: 20120928
  Serious: No
  Sender: FDA-Public Use
  Company Number: US-MUTUAL PHARMACEUTICAL COMPANY, INC.-CLCY20120077

PATIENT
  Age: 59 Year
  Sex: Male
  Weight: 97.61 kg

DRUGS (2)
  1. CEPHALEXIN [Suspect]
     Indication: JOINT SWELLING
     Route: 048
     Dates: start: 20120425
  2. COLCRYS [Suspect]
     Indication: JOINT SWELLING
     Route: 048
     Dates: start: 20120425, end: 20120503

REACTIONS (2)
  - PARAESTHESIA [None]
  - HYPOAESTHESIA [None]
